FAERS Safety Report 24386992 (Version 1)
Quarter: 2024Q4

REPORT INFORMATION
  Report Type: Spontaneous
  Country: BG (occurrence: BG)
  Receive Date: 20241002
  Receipt Date: 20241002
  Transmission Date: 20250114
  Serious: Yes (Other)
  Sender: ASTELLAS
  Company Number: BG-ASTELLAS-2024-AER-009618

PATIENT
  Age: 53 Year

DRUGS (4)
  1. PADCEV [Suspect]
     Active Substance: ENFORTUMAB VEDOTIN-EJFV
     Indication: Bladder cancer
     Dosage: 3 COURSES PERFORMED, W1D1 (WEEK 1, DAY 1)
     Route: 065
     Dates: start: 20240327
  2. PADCEV [Suspect]
     Active Substance: ENFORTUMAB VEDOTIN-EJFV
     Dosage: W3D15 (WEEK 3, DAY 15)
     Route: 065
     Dates: start: 20240613
  3. PADCEV [Suspect]
     Active Substance: ENFORTUMAB VEDOTIN-EJFV
     Dosage: TWO MORE COURSES
     Route: 065
  4. PADCEV [Suspect]
     Active Substance: ENFORTUMAB VEDOTIN-EJFV
     Dosage: LAST COURSE
     Route: 065
     Dates: start: 20240806

REACTIONS (1)
  - Malignant neoplasm progression [Unknown]

NARRATIVE: CASE EVENT DATE: 20240827
